FAERS Safety Report 6383053-3 (Version None)
Quarter: 2009Q3

REPORT INFORMATION
  Report Type: 
  Country: None (occurrence: None)
  Receive Date: 20090930
  Receipt Date: 20090918
  Transmission Date: 20100115
  Serious: Yes (Hospitalization)
  Sender: FDA-Public Use
  Company Number: FR-WYE-H11117809

PATIENT
  Sex: Male

DRUGS (5)
  1. INIPOMP [Suspect]
     Route: 048
     Dates: start: 20090608, end: 20090618
  2. DOLIPRANE [Suspect]
     Indication: PAIN
     Dosage: UNKNOWN
     Dates: start: 20090608
  3. DEROXAT [Suspect]
     Indication: DEPRESSION
     Route: 048
     Dates: start: 20090215, end: 20090301
  4. DEROXAT [Suspect]
     Route: 048
     Dates: start: 20090415, end: 20090515
  5. DEROXAT [Suspect]
     Route: 048
     Dates: start: 20090608, end: 20090608

REACTIONS (8)
  - CONJUNCTIVAL HAEMORRHAGE [None]
  - DECREASED APPETITE [None]
  - DIARRHOEA [None]
  - DYSPHAGIA [None]
  - GENERAL PHYSICAL HEALTH DETERIORATION [None]
  - ONYCHOMYCOSIS [None]
  - STEVENS-JOHNSON SYNDROME [None]
  - WEIGHT DECREASED [None]
